FAERS Safety Report 20661598 (Version 1)
Quarter: 2022Q2

REPORT INFORMATION
  Report Type: Spontaneous
  Country: US (occurrence: US)
  Receive Date: 20220401
  Receipt Date: 20220401
  Transmission Date: 20220721
  Serious: Yes (Other)
  Sender: FDA-Public Use
  Company Number: US-GLAXOSMITHKLINE-US2022GSK057985

PATIENT
  Sex: Female

DRUGS (2)
  1. ZANTAC [Suspect]
     Active Substance: RANITIDINE HYDROCHLORIDE
     Dosage: 300 MG, WE
     Route: 065
     Dates: start: 199804, end: 201402
  2. ZANTAC [Suspect]
     Active Substance: RANITIDINE HYDROCHLORIDE
     Dosage: 300 MG, WE
     Route: 065
     Dates: start: 199804, end: 201402

REACTIONS (5)
  - Breast cancer [Unknown]
  - Lung neoplasm malignant [Unknown]
  - Ovarian cancer [Unknown]
  - Thyroid cancer [Unknown]
  - Uterine cancer [Unknown]
